FAERS Safety Report 12183388 (Version 1)
Quarter: 2016Q1

REPORT INFORMATION
  Report Type: Spontaneous
  Country: US (occurrence: US)
  Receive Date: 20160316
  Receipt Date: 20160316
  Transmission Date: 20160526
  Serious: Yes (Life-Threatening, Other)
  Sender: FDA-Public Use
  Company Number: US-ACTAVIS-2016-05678

PATIENT
  Age: 19 Year
  Sex: Male

DRUGS (9)
  1. FENTANYL UNKNOWN STRENGTH (WATSON LABORATORIES) [Suspect]
     Active Substance: FENTANYL
     Indication: SEDATION
     Dosage: 50 ?G, SINGLE
     Route: 042
  2. MIDAZOLAM [Concomitant]
     Active Substance: MIDAZOLAM\MIDAZOLAM HYDROCHLORIDE
     Indication: SEDATION
     Dosage: 4 MG, SINGLE
     Route: 042
  3. SALINE                             /00075401/ [Concomitant]
     Active Substance: SODIUM CHLORIDE
     Indication: ARTHROSCOPIC SURGERY
     Dosage: SURGICAL IRRIGATION OF 36 L, WITH EVERY 3 L OF NORMAL SALINE
     Route: 026
  4. BUPIVACAINE [Concomitant]
     Active Substance: BUPIVACAINE
     Indication: LOCAL ANAESTHESIA
     Dosage: 35 ML, SINGLE
     Route: 051
  5. CEFAZOLIN [Concomitant]
     Active Substance: CEFAZOLIN
     Indication: PRODUCT USED FOR UNKNOWN INDICATION
     Dosage: 1000 MG, UNKNOWN
     Route: 065
  6. OXYGEN. [Concomitant]
     Active Substance: OXYGEN
     Indication: PRODUCT USED FOR UNKNOWN INDICATION
     Dosage: 3 L/MIN
     Route: 055
  7. OXYGEN. [Concomitant]
     Active Substance: OXYGEN
     Dosage: 3 L/MIN
     Route: 042
  8. PROPOFOL. [Concomitant]
     Active Substance: PROPOFOL
     Indication: PRODUCT USED FOR UNKNOWN INDICATION
     Dosage: 75 ?G/KG/MIN
     Route: 065
  9. EPINEPHRINE. [Suspect]
     Active Substance: EPINEPHRINE
     Indication: ARTHROSCOPIC SURGERY
     Dosage: SURGICAL IRRIGATION OF 36 L, WITH EVERY 3 L OF NORMAL SALINE CONTAINING 1 ML OF 1:1000 EPINEPHRINE
     Route: 026

REACTIONS (3)
  - Cardiac arrest [Recovered/Resolved]
  - Hypotension [Recovered/Resolved]
  - Bradycardia [Recovered/Resolved]
